FAERS Safety Report 6104521-5 (Version None)
Quarter: 2009Q1

REPORT INFORMATION
  Report Type: 
  Country: None (occurrence: None)
  Receive Date: 20090227
  Receipt Date: 20080417
  Transmission Date: 20090719
  Serious: Yes (Hospitalization)
  Sender: FDA-Public Use
  Company Number: RB-0822-2008

PATIENT
  Age: 38 Year
  Sex: Male

DRUGS (5)
  1. SUBOXONE [Suspect]
     Indication: DRUG DEPENDENCE
     Dosage: 8 MG QID SUBLINGUAL;  8 MG Q2H  SUBLINGUAL; 4 MG Q4H  SUBLINGUAL
     Route: 060
     Dates: start: 20080401, end: 20080417
  2. SUBOXONE [Suspect]
     Indication: DRUG DEPENDENCE
     Dosage: 8 MG QID SUBLINGUAL;  8 MG Q2H  SUBLINGUAL; 4 MG Q4H  SUBLINGUAL
     Route: 060
     Dates: start: 20080408
  3. SUBOXONE [Suspect]
     Indication: DRUG DEPENDENCE
     Dosage: 8 MG QID SUBLINGUAL;  8 MG Q2H  SUBLINGUAL; 4 MG Q4H  SUBLINGUAL
     Route: 060
     Dates: start: 20080418
  4. KLONOPIN [Concomitant]
  5. TALWIN [Concomitant]

REACTIONS (3)
  - CONFUSIONAL STATE [None]
  - DEPRESSION [None]
  - OVERDOSE [None]
